FAERS Safety Report 15127426 (Version 4)
Quarter: 2020Q2

REPORT INFORMATION
  Report Type: Report from Study
  Country: US (occurrence: US)
  Receive Date: 20180710
  Receipt Date: 20200427
  Transmission Date: 20200713
  Serious: Yes (Hospitalization)
  Sender: FDA-Public Use
  Company Number: US-ACTELION-A-NJ2018-174980

PATIENT
  Age: 68 Year
  Sex: Female

DRUGS (12)
  1. ASPIRIN. [Concomitant]
     Active Substance: ASPIRIN
     Dosage: 325 MG, 1 X QD
  2. ATORVASTATIN [Concomitant]
     Active Substance: ATORVASTATIN
  3. ADCIRCA [Concomitant]
     Active Substance: TADALAFIL
  4. HYDROCHLOROTHIAZIDE. [Concomitant]
     Active Substance: HYDROCHLOROTHIAZIDE
  5. MIRALAX [Concomitant]
     Active Substance: POLYETHYLENE GLYCOL 3350
  6. OPSUMIT [Suspect]
     Active Substance: MACITENTAN
     Indication: PULMONARY ARTERIAL HYPERTENSION
     Dosage: 10 MG, QD
     Route: 048
     Dates: start: 20170801
  7. OMEPRAZOLE. [Concomitant]
     Active Substance: OMEPRAZOLE
  8. MELATONIN [Concomitant]
     Active Substance: MELATONIN
  9. MOBIC [Concomitant]
     Active Substance: MELOXICAM
  10. CALCIUM PLUS [Concomitant]
  11. VITAMIN D3 [Concomitant]
     Active Substance: CHOLECALCIFEROL
  12. METAMUCIL [Concomitant]
     Active Substance: PLANTAGO SEED

REACTIONS (9)
  - Hip arthroplasty [Recovered/Resolved]
  - Pain [Recovered/Resolved]
  - Pulmonary hypertension [Unknown]
  - Left ventricular end-diastolic pressure increased [Unknown]
  - Muscle spasms [Unknown]
  - Pain in extremity [Unknown]
  - Hypotension [Unknown]
  - Hospitalisation [Unknown]
  - Oedema peripheral [Unknown]

NARRATIVE: CASE EVENT DATE: 201712
